FAERS Safety Report 6986736-7 (Version None)
Quarter: 2010Q3

REPORT INFORMATION
  Report Type: 
  Country: None (occurrence: None)
  Receive Date: 20100915
  Receipt Date: 20090726
  Transmission Date: 20110219
  Serious: No
  Sender: FDA-Public Use
  Company Number: US-WYE-H10334609

PATIENT
  Sex: Female
  Weight: 77.18 kg

DRUGS (1)
  1. PRISTIQ [Suspect]
     Indication: DEPRESSION
     Dosage: UNKNOWN DAILY DOSE
     Route: 048
     Dates: start: 20090717

REACTIONS (4)
  - AGITATION [None]
  - DYSKINESIA [None]
  - INSOMNIA [None]
  - OEDEMA PERIPHERAL [None]
